FAERS Safety Report 5367714-0 (Version None)
Quarter: 2007Q2

REPORT INFORMATION
  Report Type: 
  Country: None (occurrence: None)
  Receive Date: 20070622
  Receipt Date: 20070312
  Transmission Date: 20071010
  Serious: No
  Sender: FDA-Public Use
  Company Number: US-ASTRAZENECA-2007UW04751

PATIENT
  Age: 3 Year
  Sex: Female
  Weight: 16.8 kg

DRUGS (3)
  1. PULMICORT RESPULES [Suspect]
     Indication: RESPIRATORY DISTRESS
     Route: 055
     Dates: start: 20070301
  2. PULMICORT RESPULES [Suspect]
     Indication: ASTHMA
     Route: 055
     Dates: start: 20070301
  3. ALBUTEROL [Concomitant]

REACTIONS (4)
  - ENERGY INCREASED [None]
  - IRRITABILITY [None]
  - MOOD ALTERED [None]
  - PYREXIA [None]
